FAERS Safety Report 5523516-3 (Version None)
Quarter: 2007Q4

REPORT INFORMATION
  Report Type: 
  Country: None (occurrence: None)
  Receive Date: 20071121
  Receipt Date: 20071102
  Transmission Date: 20080405
  Serious: Yes (Other)
  Sender: FDA-Public Use
  Company Number: JP-ROCHE-528261

PATIENT
  Age: 38 Year
  Sex: Male

DRUGS (1)
  1. ROCEPHIN [Suspect]
     Indication: ACUTE TONSILLITIS
     Dosage: ROUTE REPORTED AS INTRAVENOUS (NOT OTHERWISE SPECIFIED)
     Route: 042
     Dates: start: 20071020, end: 20071026

REACTIONS (2)
  - HALLUCINATION [None]
  - HEADACHE [None]
